FAERS Safety Report 15106617 (Version 1)
Quarter: 2018Q3

REPORT INFORMATION
  Report Type: Spontaneous
  Country: US (occurrence: US)
  Receive Date: 20180704
  Receipt Date: 20180704
  Transmission Date: 20181010
  Serious: No
  Sender: FDA-Public Use
  Company Number: US-SA-2018SA177942

PATIENT
  Sex: Female

DRUGS (2)
  1. MUPIROCIN. [Concomitant]
     Active Substance: MUPIROCIN
  2. TERIFLUNOMIDE [Suspect]
     Active Substance: TERIFLUNOMIDE
     Dosage: 14 MG, QD, 1TAB
     Route: 048

REACTIONS (1)
  - Hallucination [Recovered/Resolved]
